FAERS Safety Report 5234198-2 (Version None)
Quarter: 2007Q1

REPORT INFORMATION
  Report Type: 
  Country: None (occurrence: None)
  Receive Date: 20070209
  Receipt Date: 20070129
  Transmission Date: 20070707
  Serious: Yes (Death, Congenital Anomaly)
  Sender: FDA-Public Use
  Company Number: HQWYE460305FEB07

PATIENT
  Sex: Male

DRUGS (4)
  1. EFFEXOR XR [Suspect]
     Route: 064
     Dates: start: 20030101, end: 20060101
  2. EFFEXOR XR [Suspect]
     Dosage: ^ATTEMPTED TO TAPER OFF BUT WAS UNSUCCESSFUL AND CONTINUED ON THERAPY AT UNKNOWN DOSE^
     Route: 064
     Dates: start: 20060101
  3. RANITIDINE [Concomitant]
     Dosage: UNKNOWN
     Route: 064
  4. NEXIUM [Concomitant]
     Dosage: UNKNOWN
     Route: 064

REACTIONS (1)
  - HYPOPLASTIC LEFT HEART SYNDROME [None]
